FAERS Safety Report 7722412-0 (Version None)
Quarter: 2011Q3

REPORT INFORMATION
  Report Type: 
  Country: None (occurrence: None)
  Receive Date: 20110825
  Receipt Date: 20110818
  Transmission Date: 20111222
  Serious: No
  Sender: FDA-Public Use
  Company Number: 15748197

PATIENT
  Age: 57 Year
  Sex: Male

DRUGS (4)
  1. PLACEBO [Suspect]
     Indication: EMBOLISM
     Dates: start: 20110201
  2. WARFARIN SODIUM [Suspect]
     Indication: EMBOLISM
     Dosage: 6 MILLIGRAM 1 DAY, ORAL
     Route: 048
     Dates: start: 20110209
  3. ENOXAPARIN SODIUM [Suspect]
     Indication: EMBOLISM
     Dosage: .98 MILLILITER 1 DAY, SC
     Route: 058
     Dates: start: 20110209
  4. APIXABAN [Suspect]
     Indication: EMBOLISM
     Dosage: 10 MILLIGRAM 1 DAY, ORAL
     Route: 048
     Dates: start: 20110216

REACTIONS (4)
  - HAEMOGLOBIN DECREASED [None]
  - THROMBOCYTOPENIA [None]
  - MACROCYTOSIS [None]
  - RED BLOOD CELL COUNT DECREASED [None]
